FAERS Safety Report 4532018-2 (Version None)
Quarter: 2004Q4

REPORT INFORMATION
  Report Type: 
  Country: None (occurrence: None)
  Receive Date: 20041220
  Receipt Date: 20041216
  Transmission Date: 20050328
  Serious: Yes (Hospitalization, Disabling, Other)
  Sender: FDA-Public Use
  Company Number: US-GLAXOSMITHKLINE-A0537805A

PATIENT
  Age: 51 Year
  Sex: Female

DRUGS (4)
  1. WELLBUTRIN XL [Suspect]
     Indication: DYSTHYMIC DISORDER
     Dosage: 150MG UNKNOWN
     Route: 048
     Dates: start: 20031010, end: 20031017
  2. EFFEXOR [Concomitant]
  3. PAXIL [Concomitant]
  4. BUSPAR [Concomitant]

REACTIONS (4)
  - FACIAL PAIN [None]
  - FACIAL PALSY [None]
  - FACIAL PARESIS [None]
  - HYPERTENSION [None]
